FAERS Safety Report 4786271-0 (Version None)
Quarter: 2005Q3

REPORT INFORMATION
  Report Type: 
  Country: None (occurrence: None)
  Receive Date: 20050914
  Receipt Date: 20050701
  Transmission Date: 20060218
  Serious: Yes (Hospitalization)
  Sender: FDA-Public Use
  Company Number: 163-20785-05070009

PATIENT
  Age: 66 Year
  Sex: Male

DRUGS (1)
  1. THALOMID [Suspect]
     Indication: NEOPLASM
     Dosage: 50 MG, DAILY BEDTIME, ORAL
     Route: 048
     Dates: start: 20050524

REACTIONS (3)
  - LOBAR PNEUMONIA [None]
  - PERICARDITIS [None]
  - PYREXIA [None]
